FAERS Safety Report 8303746-8 (Version None)
Quarter: 2012Q1

REPORT INFORMATION
  Report Type: 
  Country: None (occurrence: None)
  Receive Date: 20120326
  Receipt Date: 20111024
  Transmission Date: 20120608
  Serious: Yes (Other)
  Sender: FDA-Public Use
  Company Number: PHEH2011US07795

PATIENT

DRUGS (2)
  1. TASIGNA [Suspect]
     Dosage: 150 MG, BID, ORAL
     Route: 048
  2. STATIN [Concomitant]

REACTIONS (1)
  - PANCREATITIS [None]
